FAERS Safety Report 19073041 (Version 1)
Quarter: 2021Q1

REPORT INFORMATION
  Report Type: Spontaneous
  Country: VN (occurrence: VN)
  Receive Date: 20210330
  Receipt Date: 20210330
  Transmission Date: 20210420
  Serious: Yes (Other)
  Sender: FDA-Public Use
  Company Number: VN-AMNEAL PHARMACEUTICALS-2021-AMRX-01033

PATIENT
  Age: 20 Year
  Sex: Male

DRUGS (1)
  1. METHOTREXATE. [Suspect]
     Active Substance: METHOTREXATE
     Indication: ERYTHRODERMIC PSORIASIS
     Dosage: 15 MILLIGRAM, 1 /WEEK
     Route: 065

REACTIONS (1)
  - Eosinophilia [Recovered/Resolved]
